FAERS Safety Report 10974789 (Version 1)
Quarter: 2015Q2

REPORT INFORMATION
  Report Type: Report from Study
  Country: US (occurrence: US)
  Receive Date: 20150401
  Receipt Date: 20150401
  Transmission Date: 20150821
  Serious: Yes (Other)
  Sender: FDA-Public Use
  Company Number: US-ABBVIE-15P-163-1365001-00

PATIENT
  Age: 37 Year
  Sex: Female

DRUGS (1)
  1. HUMIRA [Suspect]
     Active Substance: ADALIMUMAB
     Indication: CROHN^S DISEASE
     Route: 058

REACTIONS (7)
  - Incorrect dose administered [Unknown]
  - Injection site bruising [Unknown]
  - Intestinal mucosal hypertrophy [Unknown]
  - Diarrhoea [Unknown]
  - Wrong technique in drug usage process [Unknown]
  - Injection site erythema [Unknown]
  - Injection site pain [Recovered/Resolved]

NARRATIVE: CASE EVENT DATE: 20150315
